FAERS Safety Report 4779477-8 (Version None)
Quarter: 2005Q3

REPORT INFORMATION
  Report Type: 
  Country: None (occurrence: None)
  Receive Date: 20050922
  Receipt Date: 20050524
  Transmission Date: 20060218
  Serious: Yes (Other)
  Sender: FDA-Public Use
  Company Number: 2005079134

PATIENT
  Age: 2 Year
  Sex: Female

DRUGS (2)
  1. ZYRTEC [Suspect]
     Indication: PRURITUS
     Dosage: 10 MG (5 MG, 2 IN 1 D), ORAL
     Route: 048
     Dates: start: 20050509, end: 20050511
  2. ALBUTEROL [Concomitant]

REACTIONS (1)
  - CONVULSION [None]
